FAERS Safety Report 4387793-7 (Version None)
Quarter: 2004Q2

REPORT INFORMATION
  Report Type: 
  Country: None (occurrence: None)
  Receive Date: 20040630
  Receipt Date: 20030709
  Transmission Date: 20050107
  Serious: Yes (Life-Threatening)
  Sender: FDA-Public Use
  Company Number: FR-GLAXOSMITHKLINE-B0304258A

PATIENT
  Age: 64 Year
  Sex: Male
  Weight: 91 kg

DRUGS (4)
  1. AUGMENTIN [Suspect]
     Indication: BRONCHITIS
     Dosage: 3G PER DAY
     Route: 042
     Dates: start: 20030522, end: 20030606
  2. PROPOFOL [Suspect]
     Route: 042
     Dates: start: 20030522, end: 20030605
  3. HYPNOMIDATE [Concomitant]
     Dosage: 15MG PER DAY
     Route: 042
     Dates: start: 20030520
  4. FENTANYL [Concomitant]
     Route: 042
     Dates: start: 20030520

REACTIONS (6)
  - BLOOD CREATINE PHOSPHOKINASE INCREASED [None]
  - BLOOD CREATININE INCREASED [None]
  - HYPERKALAEMIA [None]
  - OLIGURIA [None]
  - RENAL FAILURE ACUTE [None]
  - RHABDOMYOLYSIS [None]
